FAERS Safety Report 5977746-7 (Version None)
Quarter: 2008Q4

REPORT INFORMATION
  Report Type: 
  Country: None (occurrence: None)
  Receive Date: 20081202
  Receipt Date: 20081202
  Transmission Date: 20090506
  Serious: Yes (Hospitalization)
  Sender: FDA-Public Use
  Company Number: None

PATIENT
  Age: 61 Year
  Sex: Female
  Weight: 95.2554 kg

DRUGS (1)
  1. DIVALPROEX 500MG UPSHER SMITH [Suspect]
     Indication: BIPOLAR DISORDER
     Dosage: 1000,G HS PO
     Route: 048
     Dates: start: 20080917, end: 20081010

REACTIONS (5)
  - ACTIVITIES OF DAILY LIVING IMPAIRED [None]
  - ATAXIA [None]
  - CONFUSIONAL STATE [None]
  - DYSARTHRIA [None]
  - SEDATION [None]
